FAERS Safety Report 20466083 (Version 1)
Quarter: 2022Q1

REPORT INFORMATION
  Report Type: Spontaneous
  Country: US (occurrence: US)
  Receive Date: 20220213
  Receipt Date: 20220213
  Transmission Date: 20220423
  Serious: Yes (Other)
  Sender: FDA-Public Use
  Company Number: US-GLENMARK PHARMACEUTICALS-2022GMK070111

PATIENT
  Age: 31 Year
  Sex: Male

DRUGS (12)
  1. VORICONAZOLE [Suspect]
     Active Substance: VORICONAZOLE
     Indication: Acanthamoeba keratitis
     Dosage: UNK (EVERY HOUR) (SELF DISCONTINUED THE DRUG)
     Route: 061
  2. VORICONAZOLE [Suspect]
     Active Substance: VORICONAZOLE
     Dosage: UNK (RESTARTED)
     Route: 061
  3. VORICONAZOLE [Suspect]
     Active Substance: VORICONAZOLE
     Indication: Acanthamoeba keratitis
     Dosage: 400 MILLIGRAM, QD
     Route: 048
  4. VORICONAZOLE [Suspect]
     Active Substance: VORICONAZOLE
     Indication: Acanthamoeba keratitis
     Dosage: UNK (FORMULATION: INTRASTROMAL INJECTION)
     Route: 050
  5. OFLOXACIN [Concomitant]
     Active Substance: OFLOXACIN
     Indication: Acanthamoeba keratitis
     Dosage: UNK, EVERY HOUR
     Route: 065
  6. OFLOXACIN [Concomitant]
     Active Substance: OFLOXACIN
     Dosage: UNK, EVERY 2 HOURS
     Route: 065
  7. CHLORHEXIDINE [Concomitant]
     Active Substance: CHLORHEXIDINE
     Indication: Acanthamoeba keratitis
     Dosage: UNK (EVERY HOUR)
     Route: 065
  8. POLIHEXANIDE HYDROCHLORIDE [Concomitant]
     Active Substance: POLIHEXANIDE HYDROCHLORIDE
     Indication: Acanthamoeba keratitis
     Dosage: UNK, EVERY HOUR (0.02 % STRENGTH)
     Route: 065
  9. POLIHEXANIDE HYDROCHLORIDE [Concomitant]
     Active Substance: POLIHEXANIDE HYDROCHLORIDE
     Dosage: UNK (0.04% STRENGTH)
     Route: 065
  10. BACITRACIN ZINC\NEOMYCIN SULFATE\POLYMYXIN B SULFATE [Concomitant]
     Active Substance: BACITRACIN ZINC\NEOMYCIN SULFATE\POLYMYXIN B SULFATE
     Indication: Acanthamoeba keratitis
     Dosage: 3.5 MG/10,000 UNITS AT BED TIME, HS
     Route: 065
  11. BROLENE [PROPAMIDINE ISETIONATE] [Concomitant]
     Indication: Acanthamoeba keratitis
     Dosage: UNK
     Route: 065
  12. ACETAMINOPHEN [Concomitant]
     Active Substance: ACETAMINOPHEN
     Indication: Eye pain
     Dosage: UNK
     Route: 048

REACTIONS (8)
  - Treatment noncompliance [Unknown]
  - Optic perineuritis [Recovered/Resolved]
  - Drug ineffective [Unknown]
  - Condition aggravated [Recovered/Resolved]
  - Infective keratitis [Recovered/Resolved]
  - Drug intolerance [Unknown]
  - Abdominal discomfort [Unknown]
  - Product use in unapproved indication [Unknown]
